FAERS Safety Report 13575488 (Version 2)
Quarter: 2017Q2

REPORT INFORMATION
  Report Type: Spontaneous
  Country: JP (occurrence: JP)
  Receive Date: 20170524
  Receipt Date: 20170530
  Transmission Date: 20170830
  Serious: Yes (Other)
  Sender: FDA-Public Use
  Company Number: JP-SUN PHARMACEUTICAL INDUSTRIES LTD-2017RR-140288

PATIENT
  Age: 60 Year
  Sex: Male

DRUGS (2)
  1. GEMCITABINE [Suspect]
     Active Substance: GEMCITABINE\GEMCITABINE HYDROCHLORIDE
     Indication: GALLBLADDER CANCER
     Dosage: 1000 MG/M2, CYCLICAL, ON DAY 1 AND 8, 3 WEEKS PER CYCLE
     Route: 065
  2. CISPLATIN. [Suspect]
     Active Substance: CISPLATIN
     Indication: GALLBLADDER CANCER
     Dosage: 25 MG/M2, CYCLICAL, ON DAY 1 AND 8, 3 WEEKS PER CYCLE
     Route: 065

REACTIONS (4)
  - Disease progression [Unknown]
  - Leukopenia [Unknown]
  - Thrombocytopenia [Unknown]
  - Eastern Cooperative Oncology Group performance status improved [Unknown]
